FAERS Safety Report 20410549 (Version 1)
Quarter: 2022Q1

REPORT INFORMATION
  Report Type: Spontaneous
  Country: RO (occurrence: None)
  Receive Date: 20220201
  Receipt Date: 20220201
  Transmission Date: 20220424
  Serious: Yes (Other)
  Sender: FDA-Public Use
  Company Number: 2022A049739

PATIENT
  Age: 67 Year
  Sex: Female

DRUGS (5)
  1. SYMBICORT [Suspect]
     Active Substance: BUDESONIDE\FORMOTEROL FUMARATE DIHYDRATE
     Indication: Asthma
     Dosage: 320/9 MCG, 2X1 INHALATIONS/DAY
     Route: 055
  2. TIOTROPIUM [Concomitant]
     Active Substance: TIOTROPIUM
     Dosage: 1 CAPSULE/DAY INHALATOR
     Route: 065
  3. MONTELUKAST [Concomitant]
     Active Substance: MONTELUKAST SODIUM
     Dosage: 1TABLET./DAY, EVENING
     Route: 065
  4. MEDROL [Concomitant]
     Active Substance: METHYLPREDNISOLONE
     Dosage: 32MG/DAY FOR 5 DAYS
     Route: 065
  5. MOMETAZONA [Concomitant]
     Dosage: 50 MCG 1-0-1 INHALATION/NOSTRIL/DAY
     Route: 065

REACTIONS (14)
  - Asthma [Unknown]
  - Ventricular dysfunction [Unknown]
  - Eosinophil count increased [Unknown]
  - Dyspnoea exertional [Unknown]
  - Dyspnoea paroxysmal nocturnal [Unknown]
  - Exercise tolerance decreased [Unknown]
  - Productive cough [Unknown]
  - Fatigue [Unknown]
  - Nasal obstruction [Unknown]
  - Rhinorrhoea [Unknown]
  - Blood immunoglobulin E increased [Unknown]
  - Forced expiratory volume decreased [Unknown]
  - FEV1/FVC ratio decreased [Unknown]
  - Dysphonia [Unknown]

NARRATIVE: CASE EVENT DATE: 20210501
